FAERS Safety Report 7834071-7 (Version None)
Quarter: 2011Q4

REPORT INFORMATION
  Report Type: 
  Country: None (occurrence: None)
  Receive Date: 20111024
  Receipt Date: 20111024
  Transmission Date: 20120403
  Serious: Yes (Other)
  Sender: FDA-Public Use
  Company Number: None

PATIENT
  Age: 24 Year
  Sex: Male
  Weight: 97.522 kg

DRUGS (1)
  1. ENTOCORT EC [Suspect]
     Indication: CROHN'S DISEASE
     Dosage: 3 MG X 3
     Route: 048
     Dates: start: 20110908, end: 20110914

REACTIONS (7)
  - BLOOD GLUCOSE FLUCTUATION [None]
  - HALLUCINATION [None]
  - MIGRAINE [None]
  - TREMOR [None]
  - DIZZINESS [None]
  - HYPERTENSION [None]
  - PAIN [None]
